FAERS Safety Report 14896420 (Version 1)
Quarter: 2018Q2

REPORT INFORMATION
  Report Type: Spontaneous
  Country: US (occurrence: US)
  Receive Date: 20180515
  Receipt Date: 20180515
  Transmission Date: 20180711
  Serious: No
  Sender: FDA-Public Use
  Company Number: US-ASTRAZENECA-2018SE63875

PATIENT
  Sex: Male

DRUGS (1)
  1. IMFINZI [Suspect]
     Active Substance: DURVALUMAB
     Route: 042

REACTIONS (6)
  - Cellulitis [Unknown]
  - Limb injury [Unknown]
  - Peripheral swelling [Unknown]
  - Erythema [Unknown]
  - Induration [Unknown]
  - Localised infection [Unknown]
